FAERS Safety Report 19433496 (Version 11)
Quarter: 2024Q2

REPORT INFORMATION
  Report Type: Report from Study
  Country: DE (occurrence: DE)
  Receive Date: 20210618
  Receipt Date: 20240622
  Transmission Date: 20240716
  Serious: Yes (Life-Threatening, Hospitalization, Other)
  Sender: FDA-Public Use
  Company Number: DE-ABBVIE-21K-062-3908454-00

PATIENT
  Age: 54 Year
  Sex: Male

DRUGS (3)
  1. HUMIRA [Suspect]
     Active Substance: ADALIMUMAB
     Indication: Colitis ulcerative
     Route: 058
     Dates: start: 20170808, end: 20190318
  2. HUMIRA [Suspect]
     Active Substance: ADALIMUMAB
     Route: 058
     Dates: start: 20190319, end: 20191025
  3. SALOFALK [Concomitant]
     Indication: Colitis ulcerative
     Route: 048
     Dates: start: 20171107

REACTIONS (5)
  - Liver abscess [Recovered/Resolved]
  - Acute respiratory distress syndrome [Recovered/Resolved]
  - Pneumonia [Recovered/Resolved]
  - Jugular vein thrombosis [Recovered/Resolved]
  - Renal haematoma [Recovered/Resolved]

NARRATIVE: CASE EVENT DATE: 20210514
